FAERS Safety Report 9093071 (Version 1)
Quarter: 2013Q1

REPORT INFORMATION
  Report Type: Spontaneous
  Country: FR (occurrence: FR)
  Receive Date: 20130201
  Receipt Date: 20130201
  Transmission Date: 20140127
  Serious: Yes (Hospitalization)
  Sender: FDA-Public Use
  Company Number: FR-PFIZER INC-2013037652

PATIENT
  Age: 72 Year
  Sex: Male

DRUGS (7)
  1. INSPRA [Suspect]
     Dosage: 12.5 MG, 1X/DAY
     Route: 048
     Dates: start: 20121102, end: 20121129
  2. COVERSYL [Suspect]
     Dosage: 5 MG, 1X/DAY
     Route: 048
     Dates: start: 20121031, end: 20121129
  3. KARDEGIC [Concomitant]
     Dosage: 75 MG, 1X/DAY
     Route: 048
     Dates: start: 20121103
  4. EFFIENT [Concomitant]
     Dosage: 10 MG, 1X/DAY
     Route: 048
     Dates: start: 20121103
  5. TAHOR [Concomitant]
     Dosage: 80 MG, 1X/DAY
     Route: 048
     Dates: start: 20121103, end: 20121129
  6. PROCORALAN [Concomitant]
     Dosage: 7.5 MG, 2X/DAY
     Route: 048
     Dates: start: 20121103
  7. NATISPRAY [Concomitant]
     Dosage: UNK
     Route: 048
     Dates: start: 20121103

REACTIONS (2)
  - Hyperkalaemia [Recovered/Resolved]
  - Renal failure acute [Unknown]
